FAERS Safety Report 11212638 (Version 2)
Quarter: 2015Q2

REPORT INFORMATION
  Report Type: Spontaneous
  Country: AT (occurrence: AT)
  Receive Date: 20150623
  Receipt Date: 20150629
  Transmission Date: 20150821
  Serious: Yes (Life-Threatening, Hospitalization)
  Sender: FDA-Public Use
  Company Number: AT-TEVA-571272ISR

PATIENT
  Age: 84 Year
  Sex: Female

DRUGS (15)
  1. CALCIDURAN VIT. D3 [Concomitant]
     Dosage: SINCE YEARS
  2. NOVALGIN [Suspect]
     Active Substance: METAMIZOLE SODIUM
     Dates: start: 20150130
  3. TRAMAL RETARD [Concomitant]
     Active Substance: TRAMADOL
     Dosage: SINCE YEARS
     Dates: end: 20150118
  4. MIRTABENE [Suspect]
     Active Substance: MIRTAZAPINE
     Dates: start: 20150118, end: 20150126
  5. AMLODIPINE [Concomitant]
     Active Substance: AMLODIPINE BESYLATE
     Dates: start: 20150123, end: 20150126
  6. MIRTABENE [Suspect]
     Active Substance: MIRTAZAPINE
     Dates: start: 20150127, end: 20150202
  7. NOVALGIN [Suspect]
     Active Substance: METAMIZOLE SODIUM
     Dates: start: 20150123, end: 20150129
  8. PRAXITEN [Concomitant]
     Active Substance: OXAZEPAM
     Dates: start: 20150121, end: 20150122
  9. PRAXITEN [Concomitant]
     Active Substance: OXAZEPAM
     Dates: start: 20150118, end: 20150120
  10. ANTIBIOPHILUS [Concomitant]
     Dates: start: 20150123, end: 20150130
  11. TRAMAL RETARD [Concomitant]
     Active Substance: TRAMADOL
     Dates: start: 20150119
  12. XEFO [Concomitant]
     Active Substance: LORNOXICAM
     Dates: start: 20150123, end: 20150125
  13. TIANEPTINE SODIUM [Concomitant]
     Active Substance: TIANEPTINE SODIUM
     Dates: start: 20150207
  14. PANTOLOC [Concomitant]
     Active Substance: PANTOPRAZOLE SODIUM
     Dates: start: 20150123
  15. TIANEPTINE SODIUM [Concomitant]
     Active Substance: TIANEPTINE SODIUM
     Dates: start: 20150206, end: 20150206

REACTIONS (1)
  - Electrocardiogram QT prolonged [Recovered/Resolved]

NARRATIVE: CASE EVENT DATE: 20150202
